FAERS Safety Report 14783451 (Version 2)
Quarter: 2018Q2

REPORT INFORMATION
  Report Type: Spontaneous
  Country: US (occurrence: US)
  Receive Date: 20180420
  Receipt Date: 20180422
  Transmission Date: 20180711
  Serious: Yes (Other)
  Sender: FDA-Public Use
  Company Number: US-APOTEX-2018AP011127

PATIENT
  Age: 4 Year
  Sex: Female

DRUGS (1)
  1. ONDANSETRON HYDROCHLORIDE TABLETS USP [Suspect]
     Active Substance: ONDANSETRON HYDROCHLORIDE
     Indication: PRODUCT USED FOR UNKNOWN INDICATION
     Dosage: 4 MG, UNK
     Route: 048

REACTIONS (11)
  - Ataxia [Recovered/Resolved]
  - Overdose [Unknown]
  - Sinus tachycardia [Unknown]
  - Flushing [Recovered/Resolved]
  - Respiratory depression [Recovered/Resolved]
  - Depressed level of consciousness [Recovered/Resolved]
  - Accidental exposure to product by child [Unknown]
  - Speech disorder [Recovered/Resolved]
  - Hypoxia [Recovered/Resolved]
  - Balance disorder [Recovered/Resolved]
  - Mydriasis [Recovered/Resolved]
